FAERS Safety Report 13610967 (Version 1)
Quarter: 2017Q2

REPORT INFORMATION
  Report Type: Spontaneous
  Country: JP (occurrence: JP)
  Receive Date: 20170605
  Receipt Date: 20170605
  Transmission Date: 20170830
  Serious: Yes (Death)
  Sender: FDA-Public Use
  Company Number: PHJP2017JP009693

PATIENT
  Age: 74 Year
  Sex: Male

DRUGS (1)
  1. REVOLADE TAB [Suspect]
     Active Substance: ELTROMBOPAG
     Indication: IMMUNE THROMBOCYTOPENIC PURPURA
     Dosage: 12.5 MG, UNK
     Route: 048

REACTIONS (5)
  - Neoplasm malignant [Fatal]
  - Dyspepsia [Unknown]
  - Concomitant disease progression [Fatal]
  - Nausea [Recovered/Resolved]
  - Feeding disorder [Unknown]
